FAERS Safety Report 25619460 (Version 1)
Quarter: 2025Q3

REPORT INFORMATION
  Report Type: Spontaneous
  Country: US (occurrence: US)
  Receive Date: 20250729
  Receipt Date: 20250729
  Transmission Date: 20251020
  Serious: No
  Sender: GE HEALTHCARE
  Company Number: US-GE HEALTHCARE-2025CSU009961

PATIENT
  Sex: Male

DRUGS (1)
  1. OPTISON [Suspect]
     Active Substance: HUMAN ALBUMIN MICROSPHERES\PERFLUTREN
     Indication: Echocardiogram
     Route: 042
     Dates: start: 20250723, end: 20250723

REACTIONS (1)
  - Chest pain [Recovered/Resolved]

NARRATIVE: CASE EVENT DATE: 20250723
